FAERS Safety Report 7355666-3 (Version None)
Quarter: 2011Q1

REPORT INFORMATION
  Report Type: 
  Country: None (occurrence: None)
  Receive Date: 20110316
  Receipt Date: 20110217
  Transmission Date: 20110831
  Serious: No
  Sender: FDA-Public Use
  Company Number: US-B.I. PHARMACEUTICALS,INC./RIDGEFIELD-2011-BP-06034BP

PATIENT
  Age: 79 Year
  Sex: Female

DRUGS (5)
  1. DILTIAZEM [Concomitant]
     Indication: ATRIAL FIBRILLATION
  2. PRADAXA [Suspect]
     Indication: ATRIAL FIBRILLATION
     Dosage: 300 MG
     Route: 048
     Dates: start: 20110101
  3. ESTROGENIC SUBSTANCE [Concomitant]
     Indication: SUPPLEMENTATION THERAPY
  4. MULTI-VITAMIN [Concomitant]
     Indication: SUPPLEMENTATION THERAPY
  5. CALCIUM [Concomitant]
     Indication: SUPPLEMENTATION THERAPY

REACTIONS (2)
  - SENSATION OF FOREIGN BODY [None]
  - CONSTIPATION [None]
